FAERS Safety Report 6942242-7 (Version None)
Quarter: 2010Q3

REPORT INFORMATION
  Report Type: 
  Country: None (occurrence: None)
  Receive Date: 20100826
  Receipt Date: 20100812
  Transmission Date: 20110219
  Serious: Yes (Other)
  Sender: FDA-Public Use
  Company Number: US-MYLANLABS-2010S1014748

PATIENT
  Age: 73 Year
  Sex: Female
  Weight: 66 kg

DRUGS (6)
  1. DETROL LA [Interacting]
     Indication: HYPERTONIC BLADDER
     Route: 048
  2. TOVIAZ [Interacting]
     Indication: HYPERTONIC BLADDER
     Route: 048
     Dates: start: 20100715, end: 20100701
  3. SOTALOL HCL [Suspect]
     Route: 048
  4. PRILOSEC [Concomitant]
  5. ZEGERID [Concomitant]
  6. ASPIRIN [Concomitant]

REACTIONS (9)
  - BLADDER PAIN [None]
  - BREAST PAIN [None]
  - DIARRHOEA [None]
  - DRUG INEFFECTIVE [None]
  - DRUG INTERACTION [None]
  - UNEVALUABLE EVENT [None]
  - URINARY INCONTINENCE [None]
  - URINE COLOUR ABNORMAL [None]
  - URINE ODOUR ABNORMAL [None]
